FAERS Safety Report 5856669-8 (Version None)
Quarter: 2008Q3

REPORT INFORMATION
  Report Type: 
  Country: None (occurrence: None)
  Receive Date: 20080825
  Receipt Date: 20080813
  Transmission Date: 20090109
  Serious: Yes (Other)
  Sender: FDA-Public Use
  Company Number: US-PFIZER INC-2008061085

PATIENT
  Sex: Male
  Weight: 64.545 kg

DRUGS (5)
  1. DETROL LA [Suspect]
     Indication: PROSTATE CANCER
     Dates: start: 20070101, end: 20070101
  2. FLOMAX [Concomitant]
  3. AMLODIPINE [Concomitant]
  4. CLONIDINE [Concomitant]
  5. REQUIP [Concomitant]

REACTIONS (2)
  - BLADDER DISORDER [None]
  - DRUG INEFFECTIVE [None]
